FAERS Safety Report 7486279-0 (Version None)
Quarter: 2011Q2

REPORT INFORMATION
  Report Type: 
  Country: None (occurrence: None)
  Receive Date: 20110517
  Receipt Date: 20110407
  Transmission Date: 20111010
  Serious: Yes (Other)
  Sender: FDA-Public Use
  Company Number: A0921824A

PATIENT

DRUGS (1)
  1. VOTRIENT [Suspect]
     Route: 048

REACTIONS (1)
  - INTESTINAL PERFORATION [None]
